FAERS Safety Report 9463519 (Version 1)
Quarter: 2013Q3

REPORT INFORMATION
  Report Type: Report from Study
  Country: US (occurrence: US)
  Receive Date: 20130819
  Receipt Date: 20130819
  Transmission Date: 20140515
  Serious: Yes (Hospitalization)
  Sender: FDA-Public Use
  Company Number: US-ROCHE-1262039

PATIENT
  Age: 69 Year
  Sex: Female

DRUGS (3)
  1. LUCENTIS [Suspect]
     Indication: DIABETIC RETINOPATHY
     Route: 031
  2. LUCENTIS [Suspect]
     Dosage: THERAPY START DATE: 05/AUG/2013
     Route: 031
  3. INSULIN [Concomitant]

REACTIONS (11)
  - Cholecystectomy [Recovered/Resolved]
  - Ocular hyperaemia [Recovered/Resolved]
  - Lacrimation increased [Recovered/Resolved]
  - Headache [Recovered/Resolved]
  - Eye pain [Recovered/Resolved]
  - Eye pain [Recovered/Resolved]
  - Haemorrhage [Unknown]
  - Ocular hyperaemia [Unknown]
  - Pain [Unknown]
  - Vascular injury [Unknown]
  - Lacrimation increased [Unknown]
